FAERS Safety Report 5495223-7 (Version None)
Quarter: 2007Q4

REPORT INFORMATION
  Report Type: 
  Country: None (occurrence: None)
  Receive Date: 20071024
  Receipt Date: 20071012
  Transmission Date: 20080405
  Serious: Yes (Other)
  Sender: FDA-Public Use
  Company Number: US-PFIZER INC-2007086637

PATIENT
  Sex: Female
  Weight: 81.6 kg

DRUGS (5)
  1. XALATAN [Suspect]
     Indication: GLAUCOMA
  2. ACTONEL [Concomitant]
  3. FOSAMAX [Concomitant]
  4. AZOPT [Concomitant]
  5. TRAVATAN [Concomitant]

REACTIONS (4)
  - GLAUCOMA SURGERY [None]
  - INTRAOCULAR PRESSURE INCREASED [None]
  - JOINT STIFFNESS [None]
  - JOINT SWELLING [None]
